FAERS Safety Report 5250469-8 (Version None)
Quarter: 2007Q1

REPORT INFORMATION
  Report Type: 
  Country: None (occurrence: None)
  Receive Date: 20070228
  Receipt Date: 20060419
  Transmission Date: 20070707
  Serious: No
  Sender: FDA-Public Use
  Company Number: US-GLAXOSMITHKLINE-A0602496A

PATIENT
  Age: 40 Year
  Sex: Female

DRUGS (2)
  1. LAMICTAL [Suspect]
     Indication: MOOD SWINGS
     Dosage: 75MG PER DAY
     Route: 048
  2. PROTONIX [Concomitant]

REACTIONS (2)
  - RASH [None]
  - RASH MACULAR [None]
